FAERS Safety Report 14029172 (Version 1)
Quarter: 2017Q3

REPORT INFORMATION
  Report Type: Spontaneous
  Country: US (occurrence: US)
  Receive Date: 20170930
  Receipt Date: 20170930
  Transmission Date: 20171128
  Serious: No
  Sender: FDA-Public Use
  Company Number: US-SA-2017SA124481

PATIENT
  Age: 67 Year
  Sex: Female

DRUGS (1)
  1. AUBAGIO [Suspect]
     Active Substance: TERIFLUNOMIDE
     Indication: MULTIPLE SCLEROSIS
     Route: 048
     Dates: start: 20170425

REACTIONS (8)
  - Gastrointestinal disorder [Unknown]
  - Headache [Unknown]
  - Hypoaesthesia [Unknown]
  - Blood pressure increased [Unknown]
  - Nausea [Unknown]
  - Insomnia [Unknown]
  - Constipation [Unknown]
  - Feeling cold [Unknown]

NARRATIVE: CASE EVENT DATE: 20170515
